FAERS Safety Report 6056173-0 (Version None)
Quarter: 2009Q1

REPORT INFORMATION
  Report Type: 
  Country: None (occurrence: None)
  Receive Date: 20090123
  Receipt Date: 20090123
  Transmission Date: 20090719
  Serious: No
  Sender: FDA-Public Use
  Company Number: None

PATIENT

DRUGS (2)
  1. SANDOSTATIN LAR [Suspect]
     Dosage: 20MG Q MONTH IM ONCE
     Route: 030
     Dates: start: 20081228, end: 20081228
  2. SANDOSTATIN LAR [Suspect]
     Dosage: 20MG Q MONTH IM ONCE
     Route: 030
     Dates: start: 20090105, end: 20090105

REACTIONS (1)
  - PRODUCT QUALITY ISSUE [None]
